FAERS Safety Report 16876350 (Version 1)
Quarter: 2019Q4

REPORT INFORMATION
  Report Type: Spontaneous
  Country: DE (occurrence: DE)
  Receive Date: 20191002
  Receipt Date: 20191002
  Transmission Date: 20200122
  Serious: Yes (Other)
  Sender: FDA-Public Use
  Company Number: DE-TEVA-2019-DE-1114837

PATIENT
  Age: 58 Year
  Sex: Female

DRUGS (6)
  1. METAMIZOL [Concomitant]
     Active Substance: METAMIZOLE SODIUM
     Dosage: 40 GTT DAILY;
  2. BUPRENORPHIN 52.5 MICROGRAM [Concomitant]
     Active Substance: BUPRENORPHINE
  3. PANTOPRAZOL 20 [Concomitant]
     Dosage: 1-0-0
  4. GABAPENTIN 600 [Concomitant]
     Dosage: 1-1-1
  5. COPAXONE [Suspect]
     Active Substance: GLATIRAMER ACETATE
     Indication: MULTIPLE SCLEROSIS
     Dates: start: 20190905, end: 201909
  6. VENLAFAXINE [Concomitant]
     Active Substance: VENLAFAXINE HYDROCHLORIDE
     Dosage: 300 MILLIGRAM DAILY; 1-0-1

REACTIONS (2)
  - Chills [Recovered/Resolved]
  - Circulatory collapse [Recovered/Resolved]

NARRATIVE: CASE EVENT DATE: 201909
